FAERS Safety Report 4862147-5 (Version None)
Quarter: 2005Q4

REPORT INFORMATION
  Report Type: 
  Country: None (occurrence: None)
  Receive Date: 20051201
  Receipt Date: 20050826
  Transmission Date: 20060501
  Serious: No
  Sender: FDA-Public Use
  Company Number: 2005PV001557

PATIENT
  Age: 44 Year
  Sex: Female
  Weight: 87.0906 kg

DRUGS (5)
  1. BYETTA [Suspect]
     Indication: DIABETES MELLITUS NON-INSULIN-DEPENDENT
     Dosage: 5 MCG; BID; SC
     Route: 058
     Dates: start: 20050825
  2. VYTORIN [Concomitant]
  3. METFORMIN HCL [Concomitant]
  4. VITAMINS [Concomitant]
  5. GLUCOSAMINE [Concomitant]

REACTIONS (1)
  - BLOOD GLUCOSE INCREASED [None]
